FAERS Safety Report 11311683 (Version 1)
Quarter: 2015Q3

REPORT INFORMATION
  Report Type: Report from Study
  Country: US (occurrence: US)
  Receive Date: 20150727
  Receipt Date: 20150727
  Transmission Date: 20151125
  Serious: No
  Sender: FDA-Public Use
  Company Number: PHEH2015US013886

PATIENT
  Sex: Female
  Weight: 85.71 kg

DRUGS (6)
  1. MULTI VITAMIN [Concomitant]
     Active Substance: VITAMINS
     Indication: PRODUCT USED FOR UNKNOWN INDICATION
     Dosage: 1 TABLET WITH FOOD, QD
     Route: 048
     Dates: start: 20140627
  2. EVENING PRIMROSE OIL [Concomitant]
     Active Substance: EVENING PRIMROSE OIL
     Indication: PRODUCT USED FOR UNKNOWN INDICATION
     Dosage: UNK
     Route: 065
  3. CAMBIA [Concomitant]
     Active Substance: DICLOFENAC POTASSIUM
     Indication: HEADACHE
     Dosage: 1 DF, ONCE 2 HOURS IF REQUIRED
     Route: 048
     Dates: start: 20150407
  4. GILENYA [Suspect]
     Active Substance: FINGOLIMOD HYDROCHLORIDE
     Indication: MULTIPLE SCLEROSIS
     Dosage: 0.5 MG, QD
     Route: 048
     Dates: end: 20141120
  5. IMITREX [Concomitant]
     Active Substance: SUMATRIPTAN\SUMATRIPTAN SUCCINATE
     Indication: HEADACHE
     Dosage: UNK (MAXIMUM 2 TABLETS IN 24 HOURS)
     Route: 048
     Dates: start: 20150324
  6. TRANEXAMIC ACID. [Concomitant]
     Active Substance: TRANEXAMIC ACID
     Indication: MENSTRUAL DISORDER
     Dosage: 2 DF, BID
     Route: 048
     Dates: start: 20140627

REACTIONS (4)
  - Migraine [Unknown]
  - Drug ineffective [Unknown]
  - Multiple sclerosis [Unknown]
  - Cognitive disorder [Unknown]
